FAERS Safety Report 9877800 (Version 3)
Quarter: 2014Q2

REPORT INFORMATION
  Report Type: Report from Study
  Country: US (occurrence: US)
  Receive Date: 20140206
  Receipt Date: 20140527
  Transmission Date: 20141212
  Serious: Yes (Hospitalization)
  Sender: FDA-Public Use
  Company Number: US-UCBSA-111771

PATIENT
  Age: 45 Year
  Sex: Female
  Weight: 70.3 kg

DRUGS (9)
  1. VIMPAT [Suspect]
     Indication: EPILEPSY
     Route: 048
     Dates: start: 20131223
  2. VIMPAT [Suspect]
     Indication: EPILEPSY
     Dates: start: 2013
  3. KEPPRA [Suspect]
     Indication: EPILEPSY
     Dosage: 500MG AM/1000MG PM
     Route: 048
     Dates: start: 2008
  4. LAMICTAL [Concomitant]
     Indication: EPILEPSY
     Route: 048
  5. DILAUDID [Concomitant]
     Indication: PAIN
     Dosage: TOOK WHEN NEEDED AFTER 13-JAN-2014
     Route: 048
     Dates: start: 20140110, end: 20140113
  6. DILANTIN [Concomitant]
     Indication: CONVULSION
     Route: 048
     Dates: start: 1990, end: 20140204
  7. PLAQUENIL [Concomitant]
     Indication: SYSTEMIC LUPUS ERYTHEMATOSUS
     Route: 048
     Dates: start: 1998
  8. PREDNISONE [Concomitant]
     Indication: SYSTEMIC LUPUS ERYTHEMATOSUS
     Route: 048
     Dates: start: 2012
  9. METHOTREXATE [Concomitant]
     Indication: SYSTEMIC LUPUS ERYTHEMATOSUS
     Route: 048
     Dates: start: 1993

REACTIONS (5)
  - Convulsion [Recovered/Resolved]
  - Fall [Recovered/Resolved]
  - Rib fracture [Recovered/Resolved]
  - Chest pain [Recovered/Resolved]
  - Confusional state [Recovered/Resolved]
